FAERS Safety Report 26074679 (Version 1)
Quarter: 2025Q4

REPORT INFORMATION
  Report Type: Spontaneous
  Country: CN (occurrence: CN)
  Receive Date: 20251121
  Receipt Date: 20251121
  Transmission Date: 20260118
  Serious: Yes (Other)
  Sender: CHEPLAPHARM
  Company Number: CN-CHEPLA-2025013163

PATIENT
  Age: 46 Year
  Sex: Female
  Weight: 46 kg

DRUGS (10)
  1. OLANZAPINE [Suspect]
     Active Substance: OLANZAPINE
     Indication: Psychiatric symptom
     Dosage: BID; ORLANZA?DAILY DOSE: 20 MILLIGRAM
     Route: 048
     Dates: start: 20250912, end: 20250921
  2. OLANZAPINE [Suspect]
     Active Substance: OLANZAPINE
     Indication: Psychiatric symptom
     Dosage: QD?DAILY DOSE: 15 MILLIGRAM
     Route: 048
  3. VALPROATE MAGNESIUM [Suspect]
     Active Substance: VALPROATE MAGNESIUM
     Indication: Drug intolerance
     Dosage: SUSTAINED RELEASE TABLETS; BID?DAILY DOSE: 0.5 GRAM
     Route: 048
     Dates: start: 20250912, end: 20250921
  4. VALPROATE MAGNESIUM [Suspect]
     Active Substance: VALPROATE MAGNESIUM
     Indication: Psychiatric symptom
     Dosage: SUSTAINED RELEASE TABLETS; BID?DAILY DOSE: 0.5 GRAM
     Route: 048
     Dates: start: 20250912, end: 20250921
  5. VALPROATE MAGNESIUM [Suspect]
     Active Substance: VALPROATE MAGNESIUM
     Indication: Drug intolerance
     Dosage: SUSTAINED RELEASE TABLETS; QD?DAILY DOSE: 0.25 GRAM
     Route: 048
  6. VALPROATE MAGNESIUM [Suspect]
     Active Substance: VALPROATE MAGNESIUM
     Indication: Psychiatric symptom
     Dosage: SUSTAINED RELEASE TABLETS; QD?DAILY DOSE: 0.25 GRAM
     Route: 048
  7. ZIPRASIDONE HYDROCHLORIDE [Suspect]
     Active Substance: ZIPRASIDONE HYDROCHLORIDE
     Indication: Psychiatric symptom
     Dosage: DAILY DOSE: 40 MILLIGRAM
     Route: 048
     Dates: start: 20250912, end: 20250913
  8. ZIPRASIDONE HYDROCHLORIDE [Suspect]
     Active Substance: ZIPRASIDONE HYDROCHLORIDE
     Indication: Psychiatric symptom
     Dosage: 80MG IN THE EVENING??DAILY DOSE: 80 MILLIGRAM
     Route: 048
     Dates: start: 20250912, end: 20250913
  9. ZIPRASIDONE HYDROCHLORIDE [Suspect]
     Active Substance: ZIPRASIDONE HYDROCHLORIDE
     Indication: Psychiatric symptom
     Dosage: 20MG AT NOON?DAILY DOSE: 20 MILLIGRAM
     Route: 048
     Dates: start: 20250913, end: 20250921
  10. ZIPRASIDONE HYDROCHLORIDE [Suspect]
     Active Substance: ZIPRASIDONE HYDROCHLORIDE
     Indication: Psychiatric symptom
     Dosage: DAILY DOSE: 40 MILLIGRAM
     Route: 048
     Dates: start: 20250913, end: 20250921

REACTIONS (1)
  - Dystonia [Recovered/Resolved]

NARRATIVE: CASE EVENT DATE: 20250913
